FAERS Safety Report 9648863 (Version 2)
Quarter: 2013Q4

REPORT INFORMATION
  Report Type: Spontaneous
  Country: GB (occurrence: GB)
  Receive Date: 20131028
  Receipt Date: 20131028
  Transmission Date: 20140711
  Serious: Yes (Other)
  Sender: FDA-Public Use
  Company Number: GB-BAYER-2013-127281

PATIENT
  Sex: Female

DRUGS (2)
  1. CANESTEN ORAL CAPSULE [Suspect]
     Indication: INFECTION
     Dosage: UNK
     Dates: start: 201309
  2. MIRENA [Suspect]
     Dosage: UNK
     Dates: start: 201209, end: 2013

REACTIONS (7)
  - Device dislocation [None]
  - Infection [None]
  - Menorrhagia [None]
  - Dysmenorrhoea [None]
  - Micturition urgency [None]
  - Abdominal pain lower [None]
  - Hypomenorrhoea [None]
